FAERS Safety Report 12414381 (Version 1)
Quarter: 2016Q2

REPORT INFORMATION
  Report Type: Spontaneous
  Country: US (occurrence: US)
  Receive Date: 20160528
  Receipt Date: 20160528
  Transmission Date: 20160815
  Serious: No
  Sender: FDA-Public Use
  Company Number: US-JNJFOC-20160416959

PATIENT
  Sex: Male
  Weight: 90.72 kg

DRUGS (2)
  1. LITHIUM. [Concomitant]
     Active Substance: LITHIUM
     Indication: BIPOLAR DISORDER
     Route: 065
     Dates: start: 20160310
  2. HALDOL [Suspect]
     Active Substance: HALOPERIDOL
     Indication: MANIA
     Route: 030
     Dates: start: 20160408

REACTIONS (1)
  - Syncope [Unknown]
